FAERS Safety Report 13905899 (Version 1)
Quarter: 2017Q3

REPORT INFORMATION
  Report Type: Spontaneous
  Country: US (occurrence: US)
  Receive Date: 20170825
  Receipt Date: 20170825
  Transmission Date: 20171127
  Serious: Yes (Hospitalization, Other)
  Sender: FDA-Public Use
  Company Number: None

PATIENT
  Age: 20 Year
  Sex: Female
  Weight: 64.5 kg

DRUGS (19)
  1. METHOTREXATE. [Suspect]
     Active Substance: METHOTREXATE
     Indication: T-CELL LYMPHOMA
     Dosage: ?          OTHER FREQUENCY:X 1 DOSE;?
     Route: 037
  2. PROMETHAZINE [Concomitant]
     Active Substance: PROMETHAZINE\PROMETHAZINE HYDROCHLORIDE
  3. MIRALAX [Concomitant]
     Active Substance: POLYETHYLENE GLYCOL 3350
  4. LEVOCARNITIDINE [Concomitant]
  5. LORAZEPAM. [Concomitant]
     Active Substance: LORAZEPAM
  6. BIOTENE NOS [Concomitant]
     Active Substance: CETYLPYRIDINIUM CHLORIDE OR SODIUM FLUORIDE OR SODIUM MONOFLUOROPHOSPHATE OR GLUCOSE OXIDASE\LACTOFERRIN\LACTOPEROXIDASE BOVINE\LYSOZYME
  7. BACTRIM [Concomitant]
     Active Substance: SULFAMETHOXAZOLE\TRIMETHOPRIM
  8. OMEPRAZOLE. [Concomitant]
     Active Substance: OMEPRAZOLE
  9. DOCUSATE-SENNA [Concomitant]
  10. ONDANSETRON [Concomitant]
     Active Substance: ONDANSETRON
  11. MIRENA [Concomitant]
     Active Substance: LEVONORGESTREL
  12. FLUCONAZOLE. [Concomitant]
     Active Substance: FLUCONAZOLE
  13. VINCRISTINE [Concomitant]
     Active Substance: VINCRISTINE
  14. VINCRISTINE [Concomitant]
     Active Substance: VINCRISTINE
  15. VITAMIN B COMPLEX [Concomitant]
     Active Substance: CYANOCOBALAMIN\DEXPANTHENOL\NIACINAMIDE\PYRIDOXINE HYDROCHLORIDE\RIBOFLAVIN 5^-PHOSPHATE SODIUM\THIAMINE HYDROCHLORIDE\VITAMIN B COMPLEX
  16. FENOFIBRATE. [Concomitant]
     Active Substance: FENOFIBRATE
  17. NORETHINDRONE. [Concomitant]
     Active Substance: NORETHINDRONE
  18. LUPRON DEPOT-PED [Concomitant]
     Active Substance: LEUPROLIDE ACETATE
  19. ENOXAPARIN [Concomitant]
     Active Substance: ENOXAPARIN

REACTIONS (4)
  - Seizure [None]
  - Generalised tonic-clonic seizure [None]
  - Loss of consciousness [None]
  - Fatigue [None]

NARRATIVE: CASE EVENT DATE: 20170408
